FAERS Safety Report 8511581-0 (Version None)
Quarter: 2012Q3

REPORT INFORMATION
  Report Type: 
  Country: None (occurrence: None)
  Receive Date: 20120716
  Receipt Date: 20120710
  Transmission Date: 20120928
  Serious: Yes (Other)
  Sender: FDA-Public Use
  Company Number: PHEH2012US013735

PATIENT
  Sex: Female

DRUGS (4)
  1. RECLAST [Suspect]
     Indication: OSTEOPOROSIS
  2. FOSAMAX [Suspect]
     Indication: OSTEOPOROSIS
  3. ZOLEDRONIC ACID [Suspect]
     Indication: OSTEOPOROSIS
  4. ALENDRONATE SODIUM [Suspect]
     Indication: OSTEOPOROSIS

REACTIONS (6)
  - FEMUR FRACTURE [None]
  - INJURY [None]
  - SKELETAL INJURY [None]
  - EMOTIONAL DISTRESS [None]
  - ANXIETY [None]
  - LOW TURNOVER OSTEOPATHY [None]
